FAERS Safety Report 8623139-3 (Version None)
Quarter: 2012Q3

REPORT INFORMATION
  Report Type: 
  Country: None (occurrence: None)
  Receive Date: 20120827
  Receipt Date: 20120814
  Transmission Date: 20120928
  Serious: Yes (Hospitalization)
  Sender: FDA-Public Use
  Company Number: US-JNJFOC-20120808465

PATIENT
  Sex: Female
  Weight: 21 kg

DRUGS (3)
  1. PLACEBO [Suspect]
     Indication: KAWASAKI'S DISEASE
     Route: 042
     Dates: start: 20120801, end: 20120801
  2. BLINDED; INFLIXIMAB, RECOMBINANT [Suspect]
     Indication: KAWASAKI'S DISEASE
     Route: 042
     Dates: start: 20120801, end: 20120801
  3. IMMUNE GLOBULIN INTRAVENOUS (HUMAN) [Suspect]
     Indication: KAWASAKI'S DISEASE
     Route: 042

REACTIONS (1)
  - KAWASAKI'S DISEASE [None]
